FAERS Safety Report 16862300 (Version 2)
Quarter: 2020Q3

REPORT INFORMATION
  Report Type: Spontaneous
  Country: US (occurrence: US)
  Receive Date: 20190927
  Receipt Date: 20200911
  Transmission Date: 20201102
  Serious: Yes (Other)
  Sender: FDA-Public Use
  Company Number: US-GILEAD-2019-0429544

PATIENT
  Sex: Male
  Weight: 89.34 kg

DRUGS (29)
  1. COMBIVIR [Concomitant]
     Active Substance: LAMIVUDINE\ZIDOVUDINE
  2. ONDANSETRON [Concomitant]
     Active Substance: ONDANSETRON
  3. XARELTO [Concomitant]
     Active Substance: RIVAROXABAN
  4. TAMSULOSIN [Concomitant]
     Active Substance: TAMSULOSIN
  5. RITONAVIR. [Concomitant]
     Active Substance: RITONAVIR
  6. CIPROFLOXACIN. [Concomitant]
     Active Substance: CIPROFLOXACIN
  7. SOVALDI [Concomitant]
     Active Substance: SOFOSBUVIR
  8. DAKLINZA [Concomitant]
     Active Substance: DACLATASVIR
  9. AMITRIPTYLINE [Concomitant]
     Active Substance: AMITRIPTYLINE
  10. CIPROFLOXACIN. [Concomitant]
     Active Substance: CIPROFLOXACIN
  11. TRIZIVIR [Concomitant]
     Active Substance: ABACAVIR SULFATE\LAMIVUDINE\ZIDOVUDINE
  12. 25?HYDROXYVITAMIN D3 [Concomitant]
     Active Substance: CALCIFEDIOL ANHYDROUS
  13. VIRACEPT [Concomitant]
     Active Substance: NELFINAVIR MESYLATE
  14. ZIAGEN [Concomitant]
     Active Substance: ABACAVIR SULFATE
  15. ABACAVIR. [Concomitant]
     Active Substance: ABACAVIR
  16. NELFINAVIR [Concomitant]
     Active Substance: NELFINAVIR
  17. PROCHLORPERAZINE. [Concomitant]
     Active Substance: PROCHLORPERAZINE
  18. DOXAZOSIN [Concomitant]
     Active Substance: DOXAZOSIN MESYLATE
  19. NORVIR [Concomitant]
     Active Substance: RITONAVIR
  20. TRUVADA [Suspect]
     Active Substance: EMTRICITABINE\TENOFOVIR DISOPROXIL FUMARATE
     Indication: HIV INFECTION
     Dosage: UNK
     Route: 048
     Dates: start: 2004, end: 2018
  21. DESCOVY [Concomitant]
     Active Substance: EMTRICITABINE\TENOFOVIR ALAFENAMIDE FUMARATE
  22. PREZISTA [Concomitant]
     Active Substance: DARUNAVIR ETHANOLATE
  23. BACLOFEN. [Concomitant]
     Active Substance: BACLOFEN
  24. PANTOPRAZOLE [Concomitant]
     Active Substance: PANTOPRAZOLE
  25. ATRIPLA [Suspect]
     Active Substance: EFAVIRENZ\EMTRICITABINE\TENOFOVIR DISOPROXIL FUMARATE
     Indication: HIV INFECTION
     Dosage: UNK
     Route: 048
     Dates: start: 2004, end: 2018
  26. OXYBUTYNIN. [Concomitant]
     Active Substance: OXYBUTYNIN CHLORIDE
  27. GOLYTELY [Concomitant]
     Active Substance: POLYETHYLENE GLYCOL 3350\POTASSIUM CHLORIDE\SODIUM BICARBONATE\SODIUM CHLORIDE\SODIUM SULFATE ANHYDROUS
  28. GABAPENTIN. [Concomitant]
     Active Substance: GABAPENTIN
  29. ELIQUIS [Concomitant]
     Active Substance: APIXABAN

REACTIONS (8)
  - Anxiety [Not Recovered/Not Resolved]
  - Decreased activity [Unknown]
  - Pain [Not Recovered/Not Resolved]
  - Fear [Not Recovered/Not Resolved]
  - Quality of life decreased [Unknown]
  - Emotional distress [Not Recovered/Not Resolved]
  - Anhedonia [Not Recovered/Not Resolved]
  - Chronic kidney disease [Not Recovered/Not Resolved]

NARRATIVE: CASE EVENT DATE: 2018
